FAERS Safety Report 4982222-4 (Version None)
Quarter: 2006Q2

REPORT INFORMATION
  Report Type: 
  Country: None (occurrence: None)
  Receive Date: 20060424
  Receipt Date: 20060424
  Transmission Date: 20061013
  Serious: Yes (Disabling)
  Sender: FDA-Public Use
  Company Number: None

PATIENT
  Sex: Female
  Weight: 83.0083 kg

DRUGS (1)
  1. LUPRON DEPOT [Suspect]
     Indication: ENDOMETRIOSIS
     Dosage: 3.75 MG MONTHLY IM
     Route: 030
     Dates: start: 20060306, end: 20060406

REACTIONS (6)
  - ALOPECIA [None]
  - ARTHRALGIA [None]
  - INSOMNIA [None]
  - MENOPAUSAL SYMPTOMS [None]
  - OSTEOARTHRITIS [None]
  - RESTLESS LEGS SYNDROME [None]
